FAERS Safety Report 5893800-2 (Version None)
Quarter: 2008Q3

REPORT INFORMATION
  Report Type: 
  Country: None (occurrence: None)
  Receive Date: 20080923
  Receipt Date: 20080910
  Transmission Date: 20090109
  Serious: Yes (Hospitalization)
  Sender: FDA-Public Use
  Company Number: US-ELI_LILLY_AND_COMPANY-US200809002355

PATIENT
  Sex: Female
  Weight: 99.773 kg

DRUGS (17)
  1. BYETTA [Suspect]
     Indication: TYPE 2 DIABETES MELLITUS
     Dosage: 5 UG, 2/D
     Route: 058
     Dates: start: 20070801, end: 20080201
  2. BYETTA [Suspect]
     Dosage: 5 UG, 2/D
     Route: 058
     Dates: start: 20080201, end: 20080101
  3. BYETTA [Suspect]
     Dosage: 10 UG, 2/D
     Route: 058
     Dates: start: 20080101
  4. METFORMIN HCL [Concomitant]
     Indication: TYPE 2 DIABETES MELLITUS
     Dosage: UNK, UNKNOWN
  5. GLUCOTROL [Concomitant]
     Indication: TYPE 2 DIABETES MELLITUS
     Dosage: UNK, UNKNOWN
  6. LASIX [Concomitant]
     Dosage: UNK, UNKNOWN
  7. ALDACTONE [Concomitant]
     Dosage: UNK, UNKNOWN
  8. DIGOXIN [Concomitant]
     Dosage: UNK, UNKNOWN
  9. COREG [Concomitant]
     Dosage: UNK, UNKNOWN
  10. PREMPRO [Concomitant]
     Dosage: UNK, UNKNOWN
  11. SYNTHROID [Concomitant]
     Dosage: UNK, UNKNOWN
  12. LOPID [Concomitant]
     Indication: BLOOD TRIGLYCERIDES
     Dosage: UNK, UNKNOWN
  13. ZANTAC [Concomitant]
     Indication: GASTROOESOPHAGEAL REFLUX DISEASE
     Dosage: UNK, UNKNOWN
  14. DARVOCET [Concomitant]
     Indication: BACK PAIN
     Dosage: UNK, UNKNOWN
  15. OTHER VITAMIN PRODUCTS, COMBINATIONS [Concomitant]
     Indication: PROPHYLAXIS
     Dosage: UNK, UNKNOWN
  16. ACE INHIBITOR NOS [Concomitant]
     Dosage: UNK, UNKNOWN
     Dates: end: 20080201
  17. ACE INHIBITOR NOS [Concomitant]
     Dosage: UNK, UNKNOWN
     Dates: start: 20080301

REACTIONS (8)
  - BLOOD GLUCOSE INCREASED [None]
  - COUGH [None]
  - DYSPNOEA [None]
  - INSOMNIA [None]
  - LUNG DISORDER [None]
  - LYMPHADENOPATHY [None]
  - NASAL CONGESTION [None]
  - PYREXIA [None]
